FAERS Safety Report 8082444-2 (Version None)
Quarter: 2012Q1

REPORT INFORMATION
  Report Type: 
  Country: None (occurrence: None)
  Receive Date: 20120127
  Receipt Date: 20110214
  Transmission Date: 20120608
  Serious: No
  Sender: FDA-Public Use
  Company Number: US-ABBOTT-11P-163-0706378-00

PATIENT
  Sex: Female
  Weight: 65.376 kg

DRUGS (3)
  1. BYSTOLIC [Concomitant]
     Indication: HYPERTENSION
  2. HUMIRA [Suspect]
     Indication: CROHN'S DISEASE
     Dates: start: 20100701
  3. DIOVAN [Concomitant]
     Indication: HYPERTENSION

REACTIONS (4)
  - ARTHRALGIA [None]
  - HEADACHE [None]
  - NAUSEA [None]
  - PAIN [None]
